FAERS Safety Report 17450673 (Version 1)
Quarter: 2020Q1

REPORT INFORMATION
  Report Type: Spontaneous
  Country: US (occurrence: US)
  Receive Date: 20200221
  Receipt Date: 20200221
  Transmission Date: 20200409
  Serious: No
  Sender: FDA-Public Use
  Company Number: None

PATIENT
  Age: 55 Year
  Sex: Female
  Weight: 81 kg

DRUGS (1)
  1. GLATIRAMER 40 MG INJECTABLE [Suspect]
     Active Substance: GLATIRAMER
     Indication: MULTIPLE SCLEROSIS
     Dosage: ?          QUANTITY:1 INJECTION(S);OTHER FREQUENCY:3 TIMES PER WEEK;?
     Route: 058
     Dates: start: 20191020

REACTIONS (7)
  - Dyspnoea [None]
  - Eructation [None]
  - Heart rate increased [None]
  - Chest discomfort [None]
  - Flushing [None]
  - Blood pressure increased [None]
  - Chest pain [None]

NARRATIVE: CASE EVENT DATE: 20200221
